FAERS Safety Report 5719082-X (Version None)
Quarter: 2008Q2

REPORT INFORMATION
  Report Type: 
  Country: None (occurrence: None)
  Receive Date: 20080423
  Receipt Date: 20080408
  Transmission Date: 20081010
  Serious: Yes (Death)
  Sender: FDA-Public Use
  Company Number: 2008S1005780

PATIENT
  Age: 68 Year
  Sex: Female

DRUGS (8)
  1. FLUCONAZOLE [Suspect]
     Indication: CRYPTOCOCCOSIS
     Dosage: 400 MG; DAILY : 600 MG; DAILY
  2. INDAPAMIDE [Concomitant]
  3. AMPHOTERICIN B [Concomitant]
  4. FLUCYTOSINE (FLUCYTOSINE) [Concomitant]
  5. AMPHOTERICIN B [Concomitant]
  6. METOPROLOL TARTRATE [Concomitant]
  7. ASPIRIN [Concomitant]
  8. FLUCYTOSINE (FLUCYTOSINE) [Concomitant]

REACTIONS (7)
  - CARDIO-RESPIRATORY ARREST [None]
  - ELECTROMECHANICAL DISSOCIATION [None]
  - GRAND MAL CONVULSION [None]
  - HYPOKALAEMIA [None]
  - NERVOUS SYSTEM DISORDER [None]
  - TORSADE DE POINTES [None]
  - VENTRICULAR FIBRILLATION [None]
